FAERS Safety Report 8969674 (Version 2)
Quarter: 2012Q4

REPORT INFORMATION
  Report Type: 
  Country: CA (occurrence: CA)
  Receive Date: 20121218
  Receipt Date: 20121225
  Transmission Date: 20130627
  Serious: Yes (Death)
  Sender: FDA-Public Use
  Company Number: CA-AMGEN-CANSP2012076172

PATIENT
  Age: 71 Year
  Sex: Male
  Weight: 88 kg

DRUGS (4)
  1. ENBREL [Suspect]
     Indication: PSORIASIS
     Dosage: 50 mg, qwk
     Route: 058
     Dates: start: 20030716, end: 20120127
  2. DILTIAZ [Concomitant]
     Indication: HYPERTENSION
     Dosage: 120 mg, qd
     Dates: start: 2008
  3. HYDROCHLOROTHIAZIDE [Concomitant]
     Indication: HYPERTENSION
     Dosage: 25 mg, UNK
  4. MAVIK [Concomitant]
     Dosage: 04 mg, UNK
     Dates: start: 2008

REACTIONS (5)
  - Myocardial infarction [Fatal]
  - Cardiac arrest [Fatal]
  - Fatigue [Unknown]
  - Snoring [Unknown]
  - Hypertension [Not Recovered/Not Resolved]
